FAERS Safety Report 4511973-0 (Version None)
Quarter: 2004Q4

REPORT INFORMATION
  Report Type: 
  Country: None (occurrence: None)
  Receive Date: 20041129
  Receipt Date: 20031104
  Transmission Date: 20050328
  Serious: No
  Sender: FDA-Public Use
  Company Number: US-BRISTOL-MYERS SQUIBB COMPANY-12426615

PATIENT
  Age: 51 Year
  Sex: Male
  Weight: 77 kg

DRUGS (3)
  1. SUSTIVA [Suspect]
     Indication: HIV TEST POSITIVE
     Dosage: TAKEN AT 6 P.M.
     Dates: start: 20011001
  2. TRIZIVIR [Concomitant]
  3. DAPSONE [Concomitant]

REACTIONS (1)
  - URTICARIA [None]
